FAERS Safety Report 5312389-X (Version None)
Quarter: 2007Q2

REPORT INFORMATION
  Report Type: 
  Country: None (occurrence: None)
  Receive Date: 20070430
  Receipt Date: 20061227
  Transmission Date: 20071010
  Serious: No
  Sender: FDA-Public Use
  Company Number: 2006UW28623

PATIENT
  Age: 70 Year
  Sex: Female
  Weight: 77.1 kg

DRUGS (4)
  1. NEXIUM [Suspect]
     Indication: GASTRITIS
     Route: 048
     Dates: start: 20060601
  2. NEXIUM [Suspect]
     Indication: DYSPEPSIA
     Route: 048
     Dates: start: 20060601
  3. NEXIUM [Suspect]
     Indication: OESOPHAGITIS
     Route: 048
     Dates: start: 20060601
  4. FOSAMAX [Concomitant]
     Dates: start: 20060601

REACTIONS (2)
  - ALOPECIA [None]
  - NAIL DISORDER [None]
